FAERS Safety Report 13567225 (Version 1)
Quarter: 2017Q2

REPORT INFORMATION
  Report Type: Spontaneous
  Country: US (occurrence: US)
  Receive Date: 20170522
  Receipt Date: 20170522
  Transmission Date: 20170830
  Serious: No
  Sender: FDA-Public Use
  Company Number: US-TEVA-758156ACC

PATIENT
  Sex: Female

DRUGS (7)
  1. DRONABINOL. [Concomitant]
     Active Substance: DRONABINOL
     Dosage: 10 MILLIGRAM DAILY;
     Route: 065
  2. XANAX XR [Concomitant]
     Active Substance: ALPRAZOLAM
     Dosage: 4 MILLIGRAM DAILY;
  3. ZOLOFT [Concomitant]
     Active Substance: SERTRALINE HYDROCHLORIDE
     Dosage: AT NIGHT
     Route: 065
  4. XANAX IR [Concomitant]
     Dosage: 2 MILLIGRAM DAILY; BID IN AFTER NOON
     Route: 065
  5. MEXILETINE [Suspect]
     Active Substance: MEXILETINE
     Indication: BACK PAIN
     Dosage: DOSE: 150 MG ONE WEEK
     Dates: start: 201703, end: 201703
  6. NEURONTIN [Concomitant]
     Active Substance: GABAPENTIN
     Dosage: 3 PILLS IN THE AM AND 3 PILLS IN THE PM
  7. NUVARING [Concomitant]
     Active Substance: ETHINYL ESTRADIOL\ETONOGESTREL
     Indication: CONTRACEPTION

REACTIONS (5)
  - Confusional state [Recovered/Resolved]
  - Amnesia [Recovered/Resolved]
  - Drug ineffective for unapproved indication [Unknown]
  - Aphasia [Recovered/Resolved]
  - Product use in unapproved indication [Unknown]
